FAERS Safety Report 6196191-5 (Version None)
Quarter: 2009Q2

REPORT INFORMATION
  Report Type: 
  Country: None (occurrence: None)
  Receive Date: 20090520
  Receipt Date: 20090508
  Transmission Date: 20091009
  Serious: No
  Sender: FDA-Public Use
  Company Number: US-ELI_LILLY_AND_COMPANY-US200905001620

PATIENT
  Age: 47 Year
  Sex: Male

DRUGS (5)
  1. ZYPREXA [Suspect]
     Indication: SCHIZOPHRENIA, PARANOID TYPE
     Dosage: 10 MG, UNK
     Dates: start: 20090324
  2. RISPERIDONE [Concomitant]
     Dosage: 50 MG, UNK
  3. LEXAPRO [Concomitant]
     Dosage: 10 MG, UNK
  4. COGENTIN [Concomitant]
     Dosage: 1 MG, AS NEEDED
  5. ASPIRIN [Concomitant]
     Dosage: UNK, DAILY (1/D)

REACTIONS (1)
  - THROMBOCYTOPENIA [None]
